FAERS Safety Report 18005339 (Version 1)
Quarter: 2020Q3

REPORT INFORMATION
  Report Type: Spontaneous
  Country: US (occurrence: US)
  Receive Date: 20200709
  Receipt Date: 20200709
  Transmission Date: 20201103
  Serious: Yes (Hospitalization)
  Sender: FDA-Public Use
  Company Number: None

PATIENT
  Age: 5 Year
  Sex: Female

DRUGS (1)
  1. LUPRON DEPOT?PED [Suspect]
     Active Substance: LEUPROLIDE ACETATE
     Dosage: ?          OTHER FREQUENCY:Q3M;?
     Route: 041
     Dates: start: 20180719

REACTIONS (3)
  - Open reduction of fracture [None]
  - Intentional dose omission [None]
  - Lower limb fracture [None]

NARRATIVE: CASE EVENT DATE: 20200708
